FAERS Safety Report 7825426 (Version 5)
Quarter: 2013Q4

REPORT INFORMATION
  Report Type: Report from Study
  Country: US (occurrence: US)
  Receive Date: 20110224
  Receipt Date: 20131001
  Transmission Date: 20140711
  Serious: Yes (Death, Hospitalization)
  Sender: FDA-Public Use
  Company Number: US-ACTELION-A-NJ2011-45159

PATIENT
  Age: 80 Year
  Sex: Male

DRUGS (5)
  1. TRACLEER [Suspect]
     Indication: PULMONARY ARTERIAL HYPERTENSION
     Dosage: UNK
     Route: 048
  2. REVATIO [Concomitant]
  3. ASPIRIN [Concomitant]
     Dosage: 325 MG, QD
  4. LASIX [Concomitant]
  5. COUMADIN [Concomitant]

REACTIONS (8)
  - Death [Fatal]
  - Diverticulitis [Recovering/Resolving]
  - Pyrexia [Recovering/Resolving]
  - Cardiac failure [Recovering/Resolving]
  - Respiratory failure [Unknown]
  - Anaemia [Recovering/Resolving]
  - Pneumonia [Recovered/Resolved]
  - Cardiac failure congestive [Unknown]
